FAERS Safety Report 8512254-0 (Version None)
Quarter: 2012Q3

REPORT INFORMATION
  Report Type: 
  Country: None (occurrence: None)
  Receive Date: 20120716
  Receipt Date: 20120702
  Transmission Date: 20120928
  Serious: Yes (Other)
  Sender: FDA-Public Use
  Company Number: JP-ROCHE-1075194

PATIENT
  Sex: Female
  Weight: 45 kg

DRUGS (4)
  1. RIMATIL [Concomitant]
     Indication: RHEUMATOID ARTHRITIS
     Route: 048
     Dates: start: 20120215
  2. MUCOSTA [Concomitant]
     Route: 048
     Dates: start: 20120215
  3. CELEBREX [Concomitant]
     Indication: RHEUMATOID ARTHRITIS
     Route: 048
     Dates: start: 20120215
  4. ACTEMRA [Suspect]
     Indication: RHEUMATOID ARTHRITIS
     Route: 041
     Dates: start: 20120301, end: 20120404

REACTIONS (2)
  - RHEUMATOID VASCULITIS [None]
  - CELLULITIS [None]
